FAERS Safety Report 20997950 (Version 1)
Quarter: 2022Q2

REPORT INFORMATION
  Report Type: Spontaneous
  Country: US (occurrence: US)
  Receive Date: 20220623
  Receipt Date: 20220623
  Transmission Date: 20220721
  Serious: No
  Sender: FDA-Public Use
  Company Number: US-BioDelivery Sciences International-2022BDSI0085

PATIENT
  Age: 59 Year
  Sex: Female

DRUGS (1)
  1. BELBUCA [Suspect]
     Active Substance: BUPRENORPHINE HYDROCHLORIDE
     Indication: Pain
     Dosage: UNKNOWN
     Route: 065

REACTIONS (3)
  - Gingival bleeding [Recovered/Resolved]
  - Toothache [Recovered/Resolved]
  - Lymphadenopathy [Recovered/Resolved]
